FAERS Safety Report 6231939-2 (Version None)
Quarter: 2009Q2

REPORT INFORMATION
  Report Type: 
  Country: None (occurrence: None)
  Receive Date: 20090616
  Receipt Date: 20090414
  Transmission Date: 20091009
  Serious: Yes (Hospitalization)
  Sender: FDA-Public Use
  Company Number: TR-ELI_LILLY_AND_COMPANY-TR200906003269

PATIENT
  Age: 71 Year
  Sex: Male

DRUGS (1)
  1. HUMALOG MIX 50/50 [Suspect]
     Indication: DIABETES MELLITUS
     Dosage: 18 IU, DAILY (1/D)
     Route: 058
     Dates: start: 20080801

REACTIONS (6)
  - ACCIDENT [None]
  - HYPOAESTHESIA [None]
  - LEG AMPUTATION [None]
  - PARAESTHESIA [None]
  - TOE AMPUTATION [None]
  - WOUND [None]
